FAERS Safety Report 24422401 (Version 1)
Quarter: 2024Q4

REPORT INFORMATION
  Report Type: Spontaneous
  Country: US (occurrence: US)
  Receive Date: 20241010
  Receipt Date: 20241010
  Transmission Date: 20250114
  Serious: No
  Sender: BAUSCH AND LOMB
  Company Number: US-BAUSCH-BL-2024-014766

PATIENT
  Age: 92 Year
  Sex: Male

DRUGS (2)
  1. FLUOROURACIL [Suspect]
     Active Substance: FLUOROURACIL
     Indication: Skin exfoliation
     Dosage: FOR 2 WEEK
     Route: 061
     Dates: start: 20240919
  2. MINOCYCLINE [Concomitant]
     Active Substance: MINOCYCLINE HYDROCHLORIDE
     Indication: Skin disorder

REACTIONS (6)
  - Skin exfoliation [Unknown]
  - Condition aggravated [Unknown]
  - Application site dryness [Unknown]
  - Application site discharge [Unknown]
  - Application site ulcer [Unknown]
  - Application site pain [Unknown]

NARRATIVE: CASE EVENT DATE: 20240901
